FAERS Safety Report 9511931 (Version 1)
Quarter: 2013Q1

REPORT INFORMATION
  Report Type: Spontaneous
  Country: US (occurrence: None)
  Receive Date: 20130305
  Receipt Date: 20130305
  Transmission Date: 20140127
  Serious: Yes (Hospitalization)
  Sender: FDA-Public Use
  Company Number: 163-21880-12111140

PATIENT
  Age: 83 Year
  Sex: Male

DRUGS (3)
  1. REVLIMID [Suspect]
     Indication: MYELODYSPLASTIC SYNDROME
     Route: 048
     Dates: start: 20120910, end: 20121005
  2. REVLIMID [Suspect]
     Indication: GLAUCOMA
     Route: 048
     Dates: start: 20120910, end: 20121005
  3. TIMOPTIC (TIMOLOL MALEATE) [Concomitant]

REACTIONS (1)
  - Deep vein thrombosis [None]
